FAERS Safety Report 11991876 (Version 2)
Quarter: 2016Q1

REPORT INFORMATION
  Report Type: Spontaneous
  Country: US (occurrence: US)
  Receive Date: 20160203
  Receipt Date: 20160304
  Transmission Date: 20160526
  Serious: No
  Sender: FDA-Public Use
  Company Number: US-JNJFOC-20151218977

PATIENT
  Sex: Male
  Weight: 94.8 kg

DRUGS (3)
  1. ZYRTEC [Suspect]
     Active Substance: CETIRIZINE HYDROCHLORIDE
     Route: 048
  2. ZYRTEC [Suspect]
     Active Substance: CETIRIZINE HYDROCHLORIDE
     Indication: URTICARIA
     Route: 048
  3. LEVEMIR [Concomitant]
     Active Substance: INSULIN DETEMIR
     Indication: DIABETES MELLITUS
     Route: 065

REACTIONS (5)
  - Off label use [Unknown]
  - Drug administration error [Unknown]
  - Wrong patient received medication [Unknown]
  - Therapeutic response unexpected [Unknown]
  - Product use issue [Unknown]
